FAERS Safety Report 7299301-1 (Version None)
Quarter: 2011Q1

REPORT INFORMATION
  Report Type: 
  Country: None (occurrence: None)
  Receive Date: 20110209
  Receipt Date: 20110126
  Transmission Date: 20110831
  Serious: Yes (Other)
  Sender: FDA-Public Use
  Company Number: GB-ACCORD-008082

PATIENT
  Age: 21 Year
  Sex: Female

DRUGS (4)
  1. CLONAZEPAM [Suspect]
     Indication: EPILEPSY
     Dosage: 0.25-MG
  2. LEVETIRACETAM [Suspect]
     Indication: EPILEPSY
     Dosage: 250.00-MG- 2.00PER-1.0 DAYS
  3. ACETAZOLAMIDE [Suspect]
     Indication: EPILEPSY
     Dosage: 125.00-MG-
  4. LAMOTRIGINE [Suspect]
     Indication: EPILEPSY

REACTIONS (8)
  - FEELING ABNORMAL [None]
  - NERVOUSNESS [None]
  - FEAR [None]
  - SPEECH DISORDER [None]
  - MUSCLE TWITCHING [None]
  - GRAND MAL CONVULSION [None]
  - COGNITIVE DISORDER [None]
  - FATIGUE [None]
